FAERS Safety Report 20509027 (Version 3)
Quarter: 2022Q2

REPORT INFORMATION
  Report Type: Spontaneous
  Country: DE (occurrence: DE)
  Receive Date: 20220223
  Receipt Date: 20220427
  Transmission Date: 20220720
  Serious: Yes (Other)
  Sender: FDA-Public Use
  Company Number: DE-BRISTOL-MYERS SQUIBB COMPANY-BMS-2022-025766

PATIENT
  Age: 90 Year
  Sex: Male
  Weight: 70 kg

DRUGS (1)
  1. ELIQUIS [Suspect]
     Active Substance: APIXABAN
     Indication: Cerebrovascular accident prophylaxis
     Dosage: 5 MILLIGRAM, BID?PAUSED  FROM  02-FEB-2022  TO  03-APR-2022?NO OTHER MEASURES BUT PAUSE OF ELIQUIS T
     Route: 048
     Dates: start: 2015, end: 20220203

REACTIONS (5)
  - Syncope [Recovering/Resolving]
  - Fall [Recovering/Resolving]
  - Blood loss anaemia [Not Recovered/Not Resolved]
  - Haematoma [Recovered/Resolved]
  - Dizziness [Recovering/Resolving]

NARRATIVE: CASE EVENT DATE: 20220203
